FAERS Safety Report 6168630-7 (Version None)
Quarter: 2009Q2

REPORT INFORMATION
  Report Type: 
  Country: None (occurrence: None)
  Receive Date: 20090423
  Receipt Date: 20090401
  Transmission Date: 20091009
  Serious: Yes (Hospitalization)
  Sender: FDA-Public Use
  Company Number: JPI-P-006877

PATIENT
  Age: 62 Year
  Sex: Male

DRUGS (6)
  1. LUVOX [Suspect]
     Indication: DEPRESSION
     Dosage: (50 MG, 1 D), ORAL; (75 MG, 1 D), ORAL
     Route: 048
     Dates: start: 20080501, end: 20081001
  2. LUVOX [Suspect]
     Indication: DEPRESSION
     Dosage: (50 MG, 1 D), ORAL; (75 MG, 1 D), ORAL
     Route: 048
     Dates: start: 20081101
  3. IMIPRAMINE HYDROCHLORIDE [Concomitant]
  4. ENALAPRIL MALEATE [Concomitant]
  5. ETIZOLAM [Concomitant]
  6. BROTIZOLAM [Concomitant]

REACTIONS (3)
  - DELUSION [None]
  - IMPULSIVE BEHAVIOUR [None]
  - PHYSICAL ASSAULT [None]
